FAERS Safety Report 7726777-5 (Version None)
Quarter: 2011Q3

REPORT INFORMATION
  Report Type: 
  Country: None (occurrence: None)
  Receive Date: 20110902
  Receipt Date: 20110826
  Transmission Date: 20111222
  Serious: Yes (Other)
  Sender: FDA-Public Use
  Company Number: AR-GLAXOSMITHKLINE-A0938226A

PATIENT
  Sex: Female
  Weight: 63 kg

DRUGS (3)
  1. PAXIL CR [Suspect]
     Dosage: 25MG PER DAY
     Route: 048
     Dates: start: 20100101
  2. NONE [Concomitant]
  3. NONE [Concomitant]

REACTIONS (6)
  - SLEEP DISORDER [None]
  - PAIN IN EXTREMITY [None]
  - NERVOUSNESS [None]
  - AGGRESSION [None]
  - DRUG INEFFECTIVE [None]
  - PRODUCT QUALITY ISSUE [None]
